FAERS Safety Report 5886935-1 (Version None)
Quarter: 2008Q3

REPORT INFORMATION
  Report Type: 
  Country: None (occurrence: None)
  Receive Date: 20080917
  Receipt Date: 20080915
  Transmission Date: 20090109
  Serious: Yes (Life-Threatening)
  Sender: FDA-Public Use
  Company Number: RU-ASTRAZENECA-2008SE04335

PATIENT
  Age: 71 Year
  Sex: Male
  Weight: 75 kg

DRUGS (2)
  1. CASODEX [Suspect]
     Indication: PROSTATE CANCER
     Route: 048
     Dates: start: 20080808, end: 20080911
  2. ZOLADEX [Concomitant]
     Indication: PROSTATE CANCER
     Route: 058
     Dates: start: 20080807

REACTIONS (4)
  - CEREBROVASCULAR ACCIDENT [None]
  - HEARING IMPAIRED [None]
  - POISONING [None]
  - VOMITING [None]
